FAERS Safety Report 17467080 (Version 1)
Quarter: 2020Q1

REPORT INFORMATION
  Report Type: Spontaneous
  Country: FR (occurrence: FR)
  Receive Date: 20200227
  Receipt Date: 20200227
  Transmission Date: 20200409
  Serious: Yes (Other)
  Sender: FDA-Public Use
  Company Number: FR-JNJFOC-20191226121

PATIENT
  Sex: Male

DRUGS (3)
  1. XEPLION [Suspect]
     Active Substance: PALIPERIDONE PALMITATE
     Indication: PSYCHOTIC DISORDER
     Dosage: DAY 0
     Route: 030
     Dates: start: 20191015, end: 20191115
  2. XEPLION [Suspect]
     Active Substance: PALIPERIDONE PALMITATE
     Route: 030
  3. RISPERDAL [Concomitant]
     Active Substance: RISPERIDONE
     Indication: PRODUCT USED FOR UNKNOWN INDICATION
     Route: 065

REACTIONS (6)
  - Dystonia [Unknown]
  - Treatment noncompliance [Unknown]
  - Laryngospasm [Recovering/Resolving]
  - Hallucination [Unknown]
  - Delusion [Unknown]
  - Confusional state [Unknown]

NARRATIVE: CASE EVENT DATE: 20191020
